FAERS Safety Report 9394608 (Version 1)
Quarter: 2013Q3

REPORT INFORMATION
  Report Type: Spontaneous
  Country: US (occurrence: None)
  Receive Date: 20130709
  Receipt Date: 20130709
  Transmission Date: 20140515
  Serious: Yes (Disabling)
  Sender: FDA-Public Use
  Company Number: None

PATIENT
  Age: 48 None
  Sex: Female
  Weight: 90.72 kg

DRUGS (17)
  1. PLAVIX [Suspect]
     Indication: MYOCARDIAL INFARCTION
     Route: 048
     Dates: start: 201008, end: 20130219
  2. AVAPRO [Concomitant]
  3. ASPIRIN [Concomitant]
  4. OXYBUTYNIN [Concomitant]
  5. CALCIUM [Concomitant]
  6. HYDROCHLOROTHIAZIDE [Concomitant]
  7. ASMANEX [Concomitant]
  8. SIMVASTATIN [Concomitant]
  9. FISH OIL [Concomitant]
  10. FENAFIBRATE [Concomitant]
  11. COMPLETE VITAMIN [Concomitant]
  12. CRANBERRY [Concomitant]
  13. ASMANEX [Concomitant]
  14. PRILOSEC [Concomitant]
  15. PROAIR [Concomitant]
  16. METFORMIN [Concomitant]
  17. POTASSIUM CL [Concomitant]

REACTIONS (17)
  - Pain [None]
  - Dysphonia [None]
  - Laryngeal disorder [None]
  - Dysphonia [None]
  - Oropharyngeal pain [None]
  - Pain in extremity [None]
  - Restlessness [None]
  - Headache [None]
  - Confusional state [None]
  - Skin discolouration [None]
  - Speech disorder [None]
  - Dyspnoea [None]
  - Nausea [None]
  - Visual impairment [None]
  - Oliguria [None]
  - Neuralgia [None]
  - Blood urine present [None]
